FAERS Safety Report 8921312 (Version 2)
Quarter: 2013Q3

REPORT INFORMATION
  Report Type: Spontaneous
  Country: US (occurrence: US)
  Receive Date: 20121121
  Receipt Date: 20130927
  Transmission Date: 20140515
  Serious: Yes (Other)
  Sender: FDA-Public Use
  Company Number: US-BRISTOL-MYERS SQUIBB COMPANY-17138603

PATIENT
  Age: 78 Year
  Sex: Female

DRUGS (2)
  1. ONGLYZA TABS 2.5 MG [Suspect]
     Dosage: INCREASED TO 5 MG DAILY.BOTTLE
  2. METFORMIN HCL [Suspect]

REACTIONS (2)
  - Pancreatitis [Unknown]
  - Drug ineffective [Unknown]
